FAERS Safety Report 11211511 (Version 1)
Quarter: 2015Q2

REPORT INFORMATION
  Report Type: Spontaneous
  Country: US (occurrence: US)
  Receive Date: 20150623
  Receipt Date: 20150623
  Transmission Date: 20150821
  Serious: Yes (Other)
  Sender: FDA-Public Use
  Company Number: US-BAYER-2015-346952

PATIENT
  Age: 32 Year
  Sex: Female

DRUGS (1)
  1. MIRENA [Suspect]
     Active Substance: LEVONORGESTREL
     Indication: CONTRACEPTION
     Dosage: 20 MCG/24HR, CONT
     Route: 015

REACTIONS (8)
  - Foetal death [None]
  - Pregnancy with contraceptive device [Recovered/Resolved]
  - Premature labour [None]
  - Device breakage [Not Recovered/Not Resolved]
  - Device difficult to use [Not Recovered/Not Resolved]
  - Drug ineffective [None]
  - Placental transfusion syndrome [None]
  - Premature rupture of membranes [None]

NARRATIVE: CASE EVENT DATE: 201408
